FAERS Safety Report 20054618 (Version 1)
Quarter: 2021Q4

REPORT INFORMATION
  Report Type: Spontaneous
  Country: IN (occurrence: IN)
  Receive Date: 20211110
  Receipt Date: 20211110
  Transmission Date: 20220303
  Serious: Yes (Death)
  Sender: FDA-Public Use
  Company Number: IN-PFIZER INC-202101487534

PATIENT
  Age: 67 Year
  Sex: Male

DRUGS (1)
  1. CRIZOTINIB [Suspect]
     Active Substance: CRIZOTINIB
     Indication: ALK gene rearrangement positive
     Dosage: 250 MG, 2X/DAY
     Route: 048
     Dates: start: 20200508

REACTIONS (1)
  - Death [Fatal]
